FAERS Safety Report 16395346 (Version 1)
Quarter: 2019Q3

REPORT INFORMATION
  Report Type: Spontaneous
  Country: US (occurrence: US)
  Receive Date: 20190604
  Receipt Date: 20190604
  Transmission Date: 20191004
  Serious: Yes (Other)
  Sender: FDA-Public Use
  Company Number: None

PATIENT
  Age: 58 Year
  Sex: Female
  Weight: 88.65 kg

DRUGS (8)
  1. WOMEN^S ONE A DAY SILVER [Concomitant]
  2. CLARITIN 24 HOUR ALLERGY RELIEF PILL [Concomitant]
  3. BIOTIN [Concomitant]
     Active Substance: BIOTIN
  4. VRAYLAR [Suspect]
     Active Substance: CARIPRAZINE
     Indication: BIPOLAR II DISORDER
     Dosage: ?          QUANTITY:1 CAPSULE(S);?
     Route: 048
     Dates: start: 20190503, end: 20190516
  5. PEPCID AC [Concomitant]
     Active Substance: FAMOTIDINE
  6. LAMICTAL [Concomitant]
     Active Substance: LAMOTRIGINE
  7. OMEGA 12 [Concomitant]
  8. CELEXA [Concomitant]
     Active Substance: CITALOPRAM HYDROBROMIDE

REACTIONS (1)
  - Mania [None]

NARRATIVE: CASE EVENT DATE: 20190506
